FAERS Safety Report 10658917 (Version 1)
Quarter: 2014Q4

REPORT INFORMATION
  Report Type: Spontaneous
  Country: RU (occurrence: RU)
  Receive Date: 20141217
  Receipt Date: 20141217
  Transmission Date: 20150529
  Serious: Yes (Hospitalization, Other)
  Sender: FDA-Public Use
  Company Number: RU-UCBSA-2014021500

PATIENT
  Age: 36 Year
  Sex: Female

DRUGS (10)
  1. VALPROIC ACID. [Suspect]
     Active Substance: VALPROIC ACID
     Indication: EPILEPSY
     Dosage: 1500MG DAILY
  2. PHENYTOIN. [Suspect]
     Active Substance: PHENYTOIN
     Dosage: 300MG DAILY
  3. KEPPRA [Suspect]
     Active Substance: LEVETIRACETAM
     Indication: EPILEPSY
     Dosage: 1000MG DAILY
     Dates: start: 200407
  4. PHENYTOIN. [Suspect]
     Active Substance: PHENYTOIN
     Indication: EPILEPSY
     Dosage: 450MG DAILY
  5. LAMICTAL [Suspect]
     Active Substance: LAMOTRIGINE
     Dosage: 200MG DAILY
  6. LAMICTAL [Suspect]
     Active Substance: LAMOTRIGINE
     Dosage: 375MG DAILY
  7. KEPPRA [Suspect]
     Active Substance: LEVETIRACETAM
     Dosage: 2000MG DAILY
  8. LAMICTAL [Suspect]
     Active Substance: LAMOTRIGINE
     Indication: EPILEPSY
     Dosage: 375MG DAILY
  9. FENTANYL. [Suspect]
     Active Substance: FENTANYL
     Indication: PAIN
     Dosage: UNKNOWN
  10. CLONAZEPAM. [Suspect]
     Active Substance: CLONAZEPAM
     Indication: EPILEPSY
     Dosage: UNKNOWN

REACTIONS (6)
  - Polyneuropathy [Recovered/Resolved]
  - Liver function test abnormal [Recovered/Resolved]
  - Derealisation [Recovered/Resolved]
  - Pregnancy [Unknown]
  - Somnolence [Recovered/Resolved]
  - Thrombocytopenia [Recovered/Resolved]
